FAERS Safety Report 6998462-9 (Version None)
Quarter: 2010Q3

REPORT INFORMATION
  Report Type: 
  Country: None (occurrence: None)
  Receive Date: 20100920
  Receipt Date: 20100908
  Transmission Date: 20110219
  Serious: Yes (Hospitalization)
  Sender: FDA-Public Use
  Company Number: US-JNJFOC-20100902881

PATIENT
  Sex: Female
  Weight: 86.18 kg

DRUGS (4)
  1. REMICADE [Suspect]
     Indication: PSORIATIC ARTHROPATHY
     Route: 042
  2. REMICADE [Suspect]
     Route: 042
  3. MTX [Concomitant]
     Indication: PSORIATIC ARTHROPATHY
  4. PREDNISONE [Concomitant]
     Indication: PSORIATIC ARTHROPATHY

REACTIONS (6)
  - DRUG INEFFECTIVE [None]
  - NAUSEA [None]
  - PSORIATIC ARTHROPATHY [None]
  - PYREXIA [None]
  - VOMITING [None]
  - WEIGHT DECREASED [None]
